FAERS Safety Report 14742137 (Version 5)
Quarter: 2020Q2

REPORT INFORMATION
  Report Type: Spontaneous
  Country: US (occurrence: US)
  Receive Date: 20180410
  Receipt Date: 20200522
  Transmission Date: 20200713
  Serious: No
  Sender: FDA-Public Use
  Company Number: US-PFIZER INC-2018141345

PATIENT
  Age: 81 Year
  Sex: Female
  Weight: 69 kg

DRUGS (1)
  1. IBRANCE [Suspect]
     Active Substance: PALBOCICLIB
     Indication: BREAST CANCER FEMALE
     Dosage: 125 MG, CYCLIC (DAILY FOR 21DAYS AND THEN OFF FOR 7 DAYS)
     Route: 048
     Dates: start: 201711

REACTIONS (5)
  - Constipation [Unknown]
  - Insomnia [Unknown]
  - Alopecia [Recovering/Resolving]
  - Hair growth abnormal [Recovering/Resolving]
  - Blood oestrogen decreased [Unknown]

NARRATIVE: CASE EVENT DATE: 2018
